FAERS Safety Report 24103991 (Version 7)
Quarter: 2025Q3

REPORT INFORMATION
  Report Type: Report from Study
  Country: US (occurrence: US)
  Receive Date: 20240717
  Receipt Date: 20250929
  Transmission Date: 20251021
  Serious: Yes (Other)
  Sender: TAKEDA
  Company Number: US-TAKEDA-2024TUS066251

PATIENT
  Sex: Male

DRUGS (8)
  1. MARIBAVIR [Suspect]
     Active Substance: MARIBAVIR
     Indication: Cytomegalovirus infection
     Dosage: 400 MILLIGRAM, BID
     Dates: start: 20240619
  2. MARIBAVIR [Suspect]
     Active Substance: MARIBAVIR
     Dosage: 400 MILLIGRAM, BID
     Dates: start: 20240705
  3. MARIBAVIR [Suspect]
     Active Substance: MARIBAVIR
     Dosage: 400 MILLIGRAM, BID
     Dates: start: 20240905
  4. MARIBAVIR [Suspect]
     Active Substance: MARIBAVIR
     Dosage: 400 MILLIGRAM, BID
     Dates: start: 20250423, end: 20250815
  5. MARIBAVIR [Suspect]
     Active Substance: MARIBAVIR
     Dosage: 400 MILLIGRAM, BID
  6. MARIBAVIR [Suspect]
     Active Substance: MARIBAVIR
     Dosage: 400 MILLIGRAM, BID
     Dates: start: 20250830
  7. MARIBAVIR [Suspect]
     Active Substance: MARIBAVIR
     Dosage: 800 MILLIGRAM, BID
  8. LETERMOVIR [Concomitant]
     Active Substance: LETERMOVIR

REACTIONS (10)
  - Vascular device infection [Unknown]
  - Drug resistance [Unknown]
  - Insomnia [Unknown]
  - Cytomegalovirus test positive [Recovering/Resolving]
  - Incorrect dose administered [Unknown]
  - Product use issue [Unknown]
  - Product prescribing issue [Unknown]
  - Fatigue [Unknown]
  - Ageusia [Unknown]
  - Decreased appetite [Unknown]
